FAERS Safety Report 4356616-4 (Version None)
Quarter: 2004Q2

REPORT INFORMATION
  Report Type: 
  Country: None (occurrence: None)
  Receive Date: 20040507
  Receipt Date: 20040426
  Transmission Date: 20050107
  Serious: Yes (Other)
  Sender: FDA-Public Use
  Company Number: 2004EU000867

PATIENT
  Age: 81 Year
  Sex: Female

DRUGS (1)
  1. FK506 OINTMENT TACROLIMUS [Suspect]
     Indication: DERMATITIS ATOPIC
     Dosage: 0.03%, UNKNOWN/D, TOPICAL
     Route: 061
     Dates: start: 20031229, end: 20040310

REACTIONS (1)
  - SUBCUTANEOUS ABSCESS [None]
